FAERS Safety Report 23320534 (Version 1)
Quarter: 2023Q4

REPORT INFORMATION
  Report Type: Spontaneous
  Country: US (occurrence: None)
  Receive Date: 20231219
  Receipt Date: 20231219
  Transmission Date: 20240109
  Serious: No
  Sender: FDA-Public Use
  Company Number: None

PATIENT

DRUGS (4)
  1. RIVAROXABAN [Suspect]
     Active Substance: RIVAROXABAN
  2. RIVAROXABAN [Suspect]
     Active Substance: RIVAROXABAN
     Route: 048
  3. PAXLOVID [Suspect]
     Active Substance: NIRMATRELVIR\RITONAVIR
  4. SAVAYSA [Suspect]
     Active Substance: EDOXABAN TOSYLATE

REACTIONS (3)
  - SARS-CoV-2 test positive [None]
  - Cerebrovascular accident [None]
  - Wrong technique in product usage process [None]
